FAERS Safety Report 8204649-X (Version None)
Quarter: 2012Q1

REPORT INFORMATION
  Report Type: 
  Country: None (occurrence: None)
  Receive Date: 20120313
  Receipt Date: 20120229
  Transmission Date: 20120608
  Serious: Yes (Life-Threatening)
  Sender: FDA-Public Use
  Company Number: FR-MILLENNIUM PHARMACEUTICALS, INC.-2012-01551

PATIENT

DRUGS (21)
  1. HEPARIN [Suspect]
     Indication: ANTICOAGULANT THERAPY
     Dosage: 42.5 MG, UNK
     Route: 042
     Dates: start: 20120214, end: 20120214
  2. HEPARIN [Suspect]
     Dosage: 50 MG, UNK
     Route: 042
     Dates: start: 20120216, end: 20120216
  3. ALENDRONIC ACID [Concomitant]
     Dosage: UNK
     Route: 048
     Dates: end: 20120130
  4. COLECALCIFEROL [Concomitant]
     Indication: SUPPLEMENTATION THERAPY
     Dosage: UNK
     Route: 048
  5. ESOMEPRAZOLE SODIUM [Concomitant]
     Indication: PROPHYLAXIS AGAINST GASTROINTESTINAL ULCER
     Dosage: 20 MG, UNK
     Route: 048
     Dates: start: 20120208
  6. HEPARIN CALCIUM [Suspect]
     Dosage: 5000 IU, UNK
     Route: 058
     Dates: start: 20120218, end: 20120219
  7. AMLODIPINE [Concomitant]
     Indication: HYPERTENSION
     Dosage: 5 MG, UNK
     Route: 048
     Dates: start: 20120213, end: 20120215
  8. HEPARIN CALCIUM [Suspect]
     Indication: THROMBOSIS PROPHYLAXIS
     Dosage: 10000 IU, UNK
     Route: 058
     Dates: start: 20120208, end: 20120211
  9. DEXAMETHASONE [Concomitant]
     Indication: MULTIPLE MYELOMA
     Dosage: 40 MG, UNK
     Route: 048
     Dates: start: 20111209, end: 20120212
  10. METOCLOPRAMIDE [Concomitant]
     Indication: NAUSEA
     Dosage: UNK
     Route: 048
     Dates: start: 20120211
  11. VELCADE [Suspect]
     Indication: MULTIPLE MYELOMA
     Route: 065
  12. HEPARIN CALCIUM [Suspect]
     Dosage: 5000 IU, UNK
     Route: 058
     Dates: start: 20120212, end: 20120216
  13. ZOLPIDEM [Concomitant]
     Dosage: 5 MG, UNK
     Route: 048
  14. TOBRAMYCIN [Concomitant]
     Indication: EYE INFECTION
     Dosage: UNK
     Dates: end: 20120207
  15. SODIUM ALGINATE W/SODIUM BICARBONATE [Concomitant]
     Indication: NAUSEA
     Dosage: UNK
     Route: 048
     Dates: start: 20120208
  16. ESCITALOPRAM [Concomitant]
     Indication: DEPRESSION
     Route: 048
  17. SODIUM POLYSTYRENE SULFONATE [Concomitant]
     Dosage: UNK
     Route: 048
     Dates: start: 20120208, end: 20120210
  18. ACETAMINOPHEN [Concomitant]
     Indication: PAIN
     Dosage: UNK
     Route: 048
  19. HEPARIN [Suspect]
     Dosage: 40 MG, UNK
     Route: 042
     Dates: start: 20120217, end: 20120217
  20. FUROSEMIDE [Concomitant]
     Indication: RENAL FAILURE ACUTE
     Dosage: 20 MG, UNK
     Route: 048
     Dates: start: 20120212, end: 20120212
  21. VENLAFAXINE [Concomitant]
     Indication: DEPRESSION
     Dosage: UNK
     Route: 048
     Dates: start: 20120130

REACTIONS (2)
  - RENAL HAEMORRHAGE [None]
  - HAEMOGLOBIN DECREASED [None]
